FAERS Safety Report 11349602 (Version 1)
Quarter: 2015Q3

REPORT INFORMATION
  Report Type: Spontaneous
  Country: US (occurrence: None)
  Receive Date: 20150805
  Receipt Date: 20150805
  Transmission Date: 20151125
  Serious: Yes (Hospitalization)
  Sender: FDA-Public Use
  Company Number: None

PATIENT
  Age: 89 Year
  Sex: Male
  Weight: 76 kg

DRUGS (16)
  1. ELIQUIS [Suspect]
     Active Substance: APIXABAN
     Route: 048
  2. APIXIBAN [Concomitant]
     Active Substance: APIXABAN
  3. LISINOPRIL. [Concomitant]
     Active Substance: LISINOPRIL
  4. DOCUSATE SODIUM. [Concomitant]
     Active Substance: DOCUSATE SODIUM
  5. CYANOCOBALAMIN. [Concomitant]
     Active Substance: CYANOCOBALAMIN
  6. LEVOTHYROXINE. [Concomitant]
     Active Substance: LEVOTHYROXINE
  7. AMIODARONE [Concomitant]
     Active Substance: AMIODARONE
  8. ASPIRIN. [Concomitant]
     Active Substance: ASPIRIN
  9. AMLODIPINE [Concomitant]
     Active Substance: AMLODIPINE BESYLATE
  10. LATANOPROST. [Concomitant]
     Active Substance: LATANOPROST
  11. PANTOPRAZOLE [Concomitant]
     Active Substance: PANTOPRAZOLE SODIUM
  12. SENNA [Concomitant]
     Active Substance: SENNA LEAF\SENNOSIDES\SENNOSIDES A AND B
  13. ATORVASTATIN [Concomitant]
     Active Substance: ATORVASTATIN
  14. CHOLECALCIFEROL [Concomitant]
     Active Substance: CHOLECALCIFEROL
  15. FOLIC ACID. [Concomitant]
     Active Substance: FOLIC ACID
  16. MULTIVITAMIN [Concomitant]
     Active Substance: VITAMINS

REACTIONS (3)
  - Cerebrovascular accident [None]
  - Perirenal haematoma [None]
  - Abdominal pain [None]

NARRATIVE: CASE EVENT DATE: 20150707
